FAERS Safety Report 12028949 (Version 1)
Quarter: 2016Q1

REPORT INFORMATION
  Report Type: Report from Study
  Country: US (occurrence: US)
  Receive Date: 20160207
  Receipt Date: 20160207
  Transmission Date: 20160526
  Serious: Yes (Hospitalization)
  Sender: FDA-Public Use
  Company Number: US-ABBVIE-15K-163-1499989-00

PATIENT
  Age: 48 Year
  Sex: Female
  Weight: 80.81 kg

DRUGS (8)
  1. HYDROCORTISONE. [Concomitant]
     Active Substance: HYDROCORTISONE
     Indication: ADRENAL INSUFFICIENCY
  2. CLINDAMYCIN [Suspect]
     Active Substance: CLINDAMYCIN\CLINDAMYCIN PHOSPHATE
     Indication: LUNG INFECTION
     Route: 048
     Dates: start: 201511
  3. TOPAMAX [Concomitant]
     Active Substance: TOPIRAMATE
     Indication: MIGRAINE
  4. CIPRO [Suspect]
     Active Substance: CIPROFLOXACIN HYDROCHLORIDE
     Indication: LUNG INFECTION
     Route: 048
     Dates: start: 201511
  5. HUMIRA [Suspect]
     Active Substance: ADALIMUMAB
     Route: 058
     Dates: start: 201510, end: 201510
  6. PROTONIX [Concomitant]
     Active Substance: PANTOPRAZOLE SODIUM
     Indication: GASTROOESOPHAGEAL REFLUX DISEASE
  7. HUMIRA [Suspect]
     Active Substance: ADALIMUMAB
     Indication: RHEUMATOID ARTHRITIS
     Route: 058
     Dates: start: 201406, end: 201510
  8. HUMIRA [Suspect]
     Active Substance: ADALIMUMAB
     Route: 058
     Dates: start: 20151122

REACTIONS (6)
  - Asthma [Not Recovered/Not Resolved]
  - Lung infection [Recovering/Resolving]
  - Asthma [Recovered/Resolved]
  - Dehydration [Recovering/Resolving]
  - Diarrhoea [Not Recovered/Not Resolved]
  - Asthma [Recovered/Resolved]

NARRATIVE: CASE EVENT DATE: 201510
